FAERS Safety Report 9664947 (Version 1)
Quarter: 2013Q4

REPORT INFORMATION
  Report Type: Report from Study
  Country: RU (occurrence: RU)
  Receive Date: 20131101
  Receipt Date: 20131101
  Transmission Date: 20140711
  Serious: Yes (Other)
  Sender: FDA-Public Use
  Company Number: RU-ABBVIE-13P-251-1164881-00

PATIENT
  Age: 59 Year
  Sex: Female

DRUGS (12)
  1. DEPAKINE CHRONO [Suspect]
     Indication: BIPOLAR I DISORDER
     Dates: start: 20121010, end: 20121031
  2. DEPAKINE CHRONO [Suspect]
     Dates: start: 20121101, end: 20121223
  3. DEPAKINE CHRONO [Suspect]
     Dates: start: 20121224
  4. INVESTIGATIONAL DRUG [Suspect]
     Indication: BIPOLAR I DISORDER
     Route: 048
     Dates: start: 20121121, end: 20121123
  5. INVESTIGATIONAL DRUG [Suspect]
     Route: 048
     Dates: start: 20121124, end: 20121205
  6. INVESTIGATIONAL DRUG [Suspect]
     Route: 048
     Dates: start: 20130214, end: 20130312
  7. BLINDED THERAPY [Suspect]
     Indication: BIPOLAR I DISORDER
     Dates: start: 20130313
  8. CAPTOPRIL [Concomitant]
     Indication: PRODUCT USED FOR UNKNOWN INDICATION
     Dates: start: 20130305, end: 20130305
  9. ENALAPRIL [Concomitant]
     Indication: PRODUCT USED FOR UNKNOWN INDICATION
     Dates: start: 20121016, end: 20130409
  10. LEVOTHYROXINE [Concomitant]
     Indication: PRODUCT USED FOR UNKNOWN INDICATION
     Dates: start: 201110
  11. SPIRONOLACTONE [Concomitant]
     Indication: PRODUCT USED FOR UNKNOWN INDICATION
     Dates: start: 20121016
  12. BISOPROLOL [Concomitant]
     Indication: PRODUCT USED FOR UNKNOWN INDICATION
     Dates: start: 20121016

REACTIONS (1)
  - Ankle fracture [Recovered/Resolved]
